FAERS Safety Report 5865909-0 (Version None)
Quarter: 2008Q3

REPORT INFORMATION
  Report Type: 
  Country: None (occurrence: None)
  Receive Date: 20080829
  Receipt Date: 20080819
  Transmission Date: 20090109
  Serious: Yes (Death, Hospitalization, Other)
  Sender: FDA-Public Use
  Company Number: JP-PFIZER INC-2006069536

PATIENT
  Age: 74 Year
  Sex: Female

DRUGS (2)
  1. CABASER [Suspect]
     Indication: PARKINSON'S DISEASE
     Route: 048
     Dates: start: 20020101, end: 20051201
  2. CARBIDOPA + LEVODOPA [Concomitant]
     Route: 048
     Dates: start: 20020101

REACTIONS (4)
  - CARDIAC FAILURE [None]
  - CARDIAC VALVE DISEASE [None]
  - DISSEMINATED INTRAVASCULAR COAGULATION [None]
  - NEUROLEPTIC MALIGNANT SYNDROME [None]
